FAERS Safety Report 10362444 (Version 4)
Quarter: 2015Q1

REPORT INFORMATION
  Report Type: Spontaneous
  Country: US (occurrence: None)
  Receive Date: 20140724
  Receipt Date: 20150114
  Transmission Date: 20150720
  Serious: Yes (Hospitalization, Other)
  Sender: FDA-Public Use
  Company Number: ADR-2008-5062

PATIENT
  Age: 53 Year
  Sex: Male

DRUGS (3)
  1. WATER. [Suspect]
     Active Substance: WATER
     Dosage: 1000 MCG/ML?
  2. GABLOFEN [Suspect]
     Active Substance: BACLOFEN
     Dosage: 2000 MCG/ML; 366.8 MCG/DAY
  3. LIORESAL [Suspect]
     Active Substance: BACLOFEN
     Indication: MUSCLE SPASTICITY

REACTIONS (19)
  - Shock [None]
  - Hyperhidrosis [None]
  - Burning sensation [None]
  - Device kink [None]
  - Peripheral coldness [None]
  - Device occlusion [None]
  - Implant site irritation [None]
  - Sepsis [None]
  - Muscle contractions involuntary [None]
  - Device issue [None]
  - Muscle spasms [None]
  - Fatigue [None]
  - Injury [None]
  - Muscle spasticity [None]
  - Infection [None]
  - Tremor [None]
  - Dyspnoea [None]
  - Device malfunction [None]
  - Drug withdrawal syndrome [None]

NARRATIVE: CASE EVENT DATE: 20080418
